FAERS Safety Report 9649084 (Version 4)
Quarter: 2013Q4

REPORT INFORMATION
  Report Type: Spontaneous
  Country: JP (occurrence: JP)
  Receive Date: 20131028
  Receipt Date: 20131202
  Transmission Date: 20140711
  Serious: Yes (Life-Threatening, Hospitalization)
  Sender: FDA-Public Use
  Company Number: JP-BRISTOL-MYERS SQUIBB COMPANY-19652361

PATIENT
  Age: 67 Year
  Sex: Male
  Weight: 59 kg

DRUGS (12)
  1. OPSO [Concomitant]
     Indication: ANALGESIC THERAPY
     Route: 048
     Dates: start: 20130903, end: 20130930
  2. NOVAMIN [Concomitant]
  3. PRIMPERAN [Concomitant]
  4. VANCOMYCIN IV [Concomitant]
     Indication: INFECTION
     Route: 041
     Dates: start: 20130905, end: 20130910
  5. CEFTAZIDIME [Concomitant]
     Indication: INFECTION
     Route: 041
     Dates: start: 20130905, end: 20130910
  6. ERBITUX SOLN FOR INF 5MG/ML [Suspect]
     Indication: OROPHARYNGEAL CANCER
     Dosage: LAST DOSE: 09AUG2013?JUL13-19AUG13-250MG/M2
     Route: 042
     Dates: start: 20130711, end: 20130819
  7. PONTAL [Suspect]
     Route: 048
     Dates: start: 20130905, end: 20130909
  8. PROMAC [Concomitant]
     Route: 048
  9. MINOMYCIN [Concomitant]
  10. AUGMENTIN [Concomitant]
     Route: 048
  11. KYTRIL [Concomitant]
     Indication: NAUSEA
     Dates: start: 20130909
  12. CALONAL [Concomitant]

REACTIONS (3)
  - Gastric ulcer [Recovering/Resolving]
  - Mucosal inflammation [Recovering/Resolving]
  - Dermatitis [Recovering/Resolving]
